FAERS Safety Report 6343361-9 (Version None)
Quarter: 2009Q3

REPORT INFORMATION
  Report Type: 
  Country: None (occurrence: None)
  Receive Date: 20090908
  Receipt Date: 20090828
  Transmission Date: 20100115
  Serious: Yes (Other)
  Sender: FDA-Public Use
  Company Number: PHHY2009JP35276

PATIENT
  Age: 12 Year
  Sex: Male

DRUGS (7)
  1. CYCLOSPORINE [Suspect]
     Indication: STEM CELL TRANSPLANT
  2. METHOTREXATE [Suspect]
     Indication: STEM CELL TRANSPLANT
  3. ACYCLOVIR [Concomitant]
     Indication: INFECTION PROPHYLAXIS
  4. PIPERACILLIN [Concomitant]
     Indication: INFECTION PROPHYLAXIS
  5. FOSFLUCONAZOLE [Concomitant]
     Indication: INFECTION PROPHYLAXIS
  6. CEFOZOPRAN [Concomitant]
  7. MEROPENEM [Concomitant]

REACTIONS (8)
  - FEBRILE NEUTROPENIA [None]
  - MUCOUS MEMBRANE DISORDER [None]
  - NAUSEA [None]
  - ODYNOPHAGIA [None]
  - ORAL DISORDER [None]
  - ORAL PAIN [None]
  - PLATELET COUNT DECREASED [None]
  - VOMITING [None]
